FAERS Safety Report 9216411 (Version 2)
Quarter: 2013Q2

REPORT INFORMATION
  Report Type: Spontaneous
  Country: US (occurrence: US)
  Receive Date: 20130408
  Receipt Date: 20130501
  Transmission Date: 20140414
  Serious: Yes (Life-Threatening, Hospitalization)
  Sender: FDA-Public Use
  Company Number: US-ELI_LILLY_AND_COMPANY-US201303009434

PATIENT
  Age: 24 Year
  Sex: Male
  Weight: 71.66 kg

DRUGS (2)
  1. ZYPREXA RELPREVV [Suspect]
     Indication: SCHIZOPHRENIA
     Dosage: 300 MG, EVERY TWO WEEKS
     Route: 030
     Dates: start: 20130304
  2. OLANZAPINE [Suspect]
     Indication: SCHIZOAFFECTIVE DISORDER
     Dosage: 40 MG, SINGLE
     Route: 048
     Dates: start: 20130311

REACTIONS (6)
  - Respiratory disorder [Recovered/Resolved]
  - Unresponsive to stimuli [Recovered/Resolved]
  - Cognitive disorder [Recovered/Resolved]
  - Insomnia [Unknown]
  - Intentional drug misuse [Unknown]
  - Overdose [Unknown]
